FAERS Safety Report 11453641 (Version 1)
Quarter: 2015Q3

REPORT INFORMATION
  Report Type: Spontaneous
  Country: US (occurrence: US)
  Receive Date: 20150831
  Receipt Date: 20150831
  Transmission Date: 20151125
  Serious: No
  Sender: FDA-Public Use
  Company Number: US-ELI_LILLY_AND_COMPANY-US200912005433

PATIENT
  Age: 59 Year
  Sex: Female

DRUGS (4)
  1. NAPROXEN. [Concomitant]
     Active Substance: NAPROXEN
  2. XANAX [Concomitant]
     Active Substance: ALPRAZOLAM
  3. CYMBALTA [Suspect]
     Active Substance: DULOXETINE HYDROCHLORIDE
     Dosage: 30 MG, EACH MORNING
     Route: 048
  4. CYMBALTA [Suspect]
     Active Substance: DULOXETINE HYDROCHLORIDE
     Dosage: 60 MG, EACH EVENING
     Route: 048

REACTIONS (2)
  - Pruritus [Not Recovered/Not Resolved]
  - Off label use [Not Recovered/Not Resolved]

NARRATIVE: CASE EVENT DATE: 200912
